FAERS Safety Report 18723959 (Version 1)
Quarter: 2021Q1

REPORT INFORMATION
  Report Type: Spontaneous
  Country: US (occurrence: US)
  Receive Date: 20210111
  Receipt Date: 20210111
  Transmission Date: 20210419
  Serious: Yes (Hospitalization, Other)
  Sender: FDA-Public Use
  Company Number: US-GLAXOSMITHKLINE-US2020GSK260583

PATIENT
  Age: 53 Year
  Sex: Male

DRUGS (2)
  1. VALACICLOVIR [Suspect]
     Active Substance: VALACYCLOVIR HYDROCHLORIDE
     Indication: HERPES ZOSTER
     Dosage: 1 G, TID
  2. VALACICLOVIR [Suspect]
     Active Substance: VALACYCLOVIR HYDROCHLORIDE
     Dosage: 500 MG DAILY

REACTIONS (5)
  - Somnolence [Recovered/Resolved]
  - Confusional state [Recovered/Resolved]
  - Neurotoxicity [Recovered/Resolved]
  - Incorrect dose administered [Unknown]
  - Agitation [Recovered/Resolved]
